FAERS Safety Report 15002432 (Version 2)
Quarter: 2019Q3

REPORT INFORMATION
  Report Type: Spontaneous
  Country: PT (occurrence: PT)
  Receive Date: 20180612
  Receipt Date: 20190730
  Transmission Date: 20191004
  Serious: Yes (Life-Threatening, Hospitalization, Other)
  Sender: FDA-Public Use
  Company Number: PHHY2017PT178168

PATIENT
  Age: 46 Year
  Sex: Female

DRUGS (8)
  1. ADRENALINE [Suspect]
     Active Substance: EPINEPHRINE
     Indication: ANAPHYLACTIC REACTION
  2. PERINDOPRIL [Suspect]
     Active Substance: PERINDOPRIL
     Indication: ANGIOEDEMA
  3. PERINDOPRIL [Suspect]
     Active Substance: PERINDOPRIL
     Indication: HYPERTENSION
     Dosage: 10 MG, QD
     Route: 065
  4. CLEMASTINE [Suspect]
     Active Substance: CLEMASTINE
     Indication: ANGIOEDEMA
     Dosage: 2 MG, UNK
     Route: 042
  5. HYDROCORTISONE. [Suspect]
     Active Substance: HYDROCORTISONE
     Indication: ANAPHYLACTIC REACTION
  6. ADRENALINE [Suspect]
     Active Substance: EPINEPHRINE
     Indication: ANGIOEDEMA
     Dosage: 1 MG, UNK
     Route: 042
  7. HYDROCORTISONE. [Suspect]
     Active Substance: HYDROCORTISONE
     Indication: ANGIOEDEMA
     Dosage: 200 MG, UNK
     Route: 042
  8. CLEMASTINE [Suspect]
     Active Substance: CLEMASTINE
     Indication: ANAPHYLACTIC REACTION

REACTIONS (22)
  - Angioedema [Recovered/Resolved]
  - Oedema peripheral [Unknown]
  - Cardiomyopathy [Recovered/Resolved]
  - Incorrect dose administered [Recovering/Resolving]
  - Nausea [Recovered/Resolved]
  - Myocardial infarction [Recovered/Resolved]
  - Hypokinesia [Recovered/Resolved]
  - Drug ineffective [Unknown]
  - Electrocardiogram ST segment elevation [Recovered/Resolved]
  - Sinus tachycardia [Recovered/Resolved]
  - Product prescribing error [Unknown]
  - Swelling face [Unknown]
  - Hypotension [Recovered/Resolved]
  - Arteriospasm coronary [Recovering/Resolving]
  - Vasospasm [Recovered/Resolved]
  - Tachypnoea [Recovered/Resolved]
  - Drug hypersensitivity [Unknown]
  - Electrocardiogram ST segment depression [Recovered/Resolved]
  - Dyspnoea [Unknown]
  - Chest pain [Recovered/Resolved]
  - Incorrect route of product administration [Unknown]
  - Acute myocardial infarction [Recovering/Resolving]
